FAERS Safety Report 19292981 (Version 1)
Quarter: 2021Q2

REPORT INFORMATION
  Report Type: Spontaneous
  Country: DE (occurrence: DE)
  Receive Date: 20210524
  Receipt Date: 20210524
  Transmission Date: 20210717
  Serious: Yes (Other)
  Sender: FDA-Public Use
  Company Number: DE-DRREDDYS-GER/GER/21/0135626

PATIENT
  Sex: Female

DRUGS (1)
  1. VENLAFAXIN BETA RETARD 150 MG HARTKAPSELN, RETARDIERT [Suspect]
     Active Substance: VENLAFAXINE HYDROCHLORIDE
     Indication: ANTIDEPRESSANT THERAPY

REACTIONS (3)
  - Stress [Unknown]
  - Mastocytosis [Unknown]
  - Histamine intolerance [Unknown]
